FAERS Safety Report 6085903-7 (Version None)
Quarter: 2009Q1

REPORT INFORMATION
  Report Type: 
  Country: None (occurrence: None)
  Receive Date: 20090220
  Receipt Date: 20090212
  Transmission Date: 20090719
  Serious: Yes (Hospitalization, Other)
  Sender: FDA-Public Use
  Company Number: ES-JNJFOC-20081202817

PATIENT
  Age: 55 Year
  Sex: Male
  Weight: 98.5 kg

DRUGS (6)
  1. REMICADE [Suspect]
     Dosage: TOTAL OF 5 INFUSIONS RECEIVED
     Route: 042
  2. REMICADE [Suspect]
     Route: 042
  3. REMICADE [Suspect]
     Route: 042
  4. REMICADE [Suspect]
     Route: 042
  5. REMICADE [Suspect]
     Indication: PSORIASIS
     Route: 042
  6. GEMFIBROZIL [Concomitant]

REACTIONS (3)
  - PULMONARY TUBERCULOSIS [None]
  - PYREXIA [None]
  - TRANSAMINASES INCREASED [None]
